FAERS Safety Report 14702992 (Version 1)
Quarter: 2018Q2

REPORT INFORMATION
  Report Type: Spontaneous
  Country: FR (occurrence: FR)
  Receive Date: 20180402
  Receipt Date: 20180402
  Transmission Date: 20180711
  Serious: Yes (Other)
  Sender: FDA-Public Use
  Company Number: FR-MERCK KGAA-2044870

PATIENT
  Age: 47 Year
  Sex: Female

DRUGS (1)
  1. NOVOTHYROX [Suspect]
     Active Substance: LEVOTHYROXINE SODIUM
     Indication: PRODUCT USED FOR UNKNOWN INDICATION
     Dates: start: 2017, end: 2017

REACTIONS (22)
  - Eye pain [Recovered/Resolved]
  - Headache [Recovered/Resolved]
  - Weight increased [Recovered/Resolved]
  - Intraocular pressure test abnormal [Recovered/Resolved]
  - Impaired work ability [Recovered/Resolved]
  - Somnolence [Recovered/Resolved]
  - Impaired driving ability [Recovered/Resolved]
  - Loss of personal independence in daily activities [Recovered/Resolved]
  - Stress [Recovered/Resolved]
  - Blood thyroid stimulating hormone decreased [Recovered/Resolved]
  - Pyrexia [Recovered/Resolved]
  - Head discomfort [Recovered/Resolved]
  - Epstein-Barr virus infection [Recovered/Resolved]
  - Blood alkaline phosphatase decreased [Recovered/Resolved]
  - Economic problem [Recovered/Resolved]
  - Fatigue [Not Recovered/Not Resolved]
  - Dizziness [Recovered/Resolved]
  - Hyperacusis [Recovered/Resolved]
  - General physical health deterioration [Recovered/Resolved]
  - Muscular weakness [Recovered/Resolved]
  - Eye disorder [Recovered/Resolved]
  - Affect lability [Recovered/Resolved]

NARRATIVE: CASE EVENT DATE: 2017
